FAERS Safety Report 21291207 (Version 1)
Quarter: 2022Q3

REPORT INFORMATION
  Report Type: Spontaneous
  Country: US (occurrence: US)
  Receive Date: 20220903
  Receipt Date: 20220903
  Transmission Date: 20221026
  Serious: No
  Sender: FDA-Public Use
  Company Number: US-drreddys-SPO/USA/22/0153685

PATIENT
  Age: 32 Year
  Sex: Female

DRUGS (1)
  1. ACCUTANE [Suspect]
     Active Substance: ISOTRETINOIN
     Indication: Acne
     Dosage: RMA ISSUE DATE: 27 APRIL 2022 06:38:11 PM, 27 MAY 2022 12:03:43 PM

REACTIONS (3)
  - Adverse drug reaction [Unknown]
  - Gastrointestinal disorder [Unknown]
  - Migraine [Unknown]
